FAERS Safety Report 9508151 (Version 1)
Quarter: 2013Q3

REPORT INFORMATION
  Report Type: Spontaneous
  Country: US (occurrence: US)
  Receive Date: 20130909
  Receipt Date: 20130909
  Transmission Date: 20140515
  Serious: No
  Sender: FDA-Public Use
  Company Number: US-PFIZER INC-2013255896

PATIENT
  Sex: Female

DRUGS (2)
  1. FLAGYL [Suspect]
     Indication: ABDOMINAL INFECTION
     Dosage: 500 MG, 3X/DAY
     Dates: end: 2013
  2. MINOCYCLINE [Suspect]
     Indication: ABDOMINAL INFECTION
     Dosage: 100 MG, 2X/DAY

REACTIONS (3)
  - Paraesthesia [Unknown]
  - Hypoaesthesia [Unknown]
  - Peripheral coldness [Unknown]
